FAERS Safety Report 4938578-1 (Version None)
Quarter: 2006Q1

REPORT INFORMATION
  Report Type: 
  Country: None (occurrence: None)
  Receive Date: 20060306
  Receipt Date: 20060216
  Transmission Date: 20060701
  Serious: Yes (Hospitalization)
  Sender: FDA-Public Use
  Company Number: DSA_27804_2006

PATIENT
  Age: 72 Year
  Sex: Female

DRUGS (6)
  1. TEMESTA [Suspect]
     Dosage: 0.33 MG Q DAY PO
     Route: 048
  2. AVLOCARDYL [Suspect]
     Dosage: DF PO
     Route: 048
  3. ELIFLIXOR [Suspect]
     Dosage: DF PO
     Route: 048
  4. DEDROGYL [Concomitant]
  5. EVISTA [Concomitant]
  6. LEVOTHYROX [Concomitant]

REACTIONS (5)
  - DELUSIONAL DISORDER, UNSPECIFIED TYPE [None]
  - DISEASE RECURRENCE [None]
  - INCOHERENT [None]
  - INCORRECT DOSE ADMINISTERED [None]
  - SOMNOLENCE [None]
